FAERS Safety Report 11916641 (Version 1)
Quarter: 2016Q1

REPORT INFORMATION
  Report Type: Spontaneous
  Country: US (occurrence: None)
  Receive Date: 20160113
  Receipt Date: 20160113
  Transmission Date: 20160526
  Serious: Yes (Life-Threatening, Disabling)
  Sender: FDA-Public Use
  Company Number: None

PATIENT
  Age: 26 Year
  Sex: Male
  Weight: 121.56 kg

DRUGS (1)
  1. OPTIMARK [Suspect]
     Active Substance: GADOVERSETAMIDE
     Indication: NUCLEAR MAGNETIC RESONANCE IMAGING BRAIN
     Dates: start: 20151231, end: 20151231

REACTIONS (13)
  - Asthenia [None]
  - Dysgeusia [None]
  - Thinking abnormal [None]
  - Dry skin [None]
  - Depressed mood [None]
  - Dyspnoea [None]
  - Tinnitus [None]
  - Burning sensation [None]
  - Respiratory rate increased [None]
  - Renal pain [None]
  - Hypoaesthesia [None]
  - Disturbance in attention [None]
  - Mental impairment [None]

NARRATIVE: CASE EVENT DATE: 20151231
